FAERS Safety Report 6299336-1 (Version None)
Quarter: 2009Q3

REPORT INFORMATION
  Report Type: 
  Country: None (occurrence: None)
  Receive Date: 20090806
  Receipt Date: 20090728
  Transmission Date: 20100115
  Serious: Yes (Life-Threatening, Hospitalization)
  Sender: FDA-Public Use
  Company Number: JP-JNJFOC-20090500085

PATIENT
  Sex: Male

DRUGS (12)
  1. PREZISTA [Suspect]
     Route: 048
  2. PREZISTA [Suspect]
     Indication: HIV INFECTION
     Route: 048
  3. INTELENCE [Suspect]
     Indication: HIV INFECTION
     Route: 048
  4. NORVIR [Suspect]
     Route: 048
  5. NORVIR [Suspect]
     Route: 048
  6. NORVIR [Suspect]
     Indication: HIV INFECTION
     Route: 048
  7. TRUVADA [Concomitant]
     Route: 048
  8. TRUVADA [Concomitant]
     Indication: HIV INFECTION
     Route: 048
  9. REYATAZ [Concomitant]
     Indication: HIV INFECTION
     Route: 048
  10. AMOXAN [Concomitant]
     Indication: DEPRESSION
  11. DEPAS [Concomitant]
     Indication: DEPRESSION
     Route: 048
  12. DOGMATYL [Concomitant]
     Indication: DEPRESSION
     Route: 048

REACTIONS (2)
  - DRUG ERUPTION [None]
  - OEDEMA [None]
